FAERS Safety Report 6763299-2 (Version None)
Quarter: 2010Q2

REPORT INFORMATION
  Report Type: 
  Country: None (occurrence: None)
  Receive Date: 20100610
  Receipt Date: 20100601
  Transmission Date: 20101027
  Serious: Yes (Other)
  Sender: FDA-Public Use
  Company Number: JP-JNJFOC-20100602244

PATIENT
  Age: 9 Decade
  Sex: Female

DRUGS (2)
  1. CRAVIT [Suspect]
     Indication: BRONCHITIS
     Route: 048
  2. GLYBURIDE [Suspect]
     Indication: DIABETES MELLITUS
     Route: 065

REACTIONS (1)
  - HYPOGLYCAEMIC COMA [None]
